FAERS Safety Report 5877519-X (Version None)
Quarter: 2008Q3

REPORT INFORMATION
  Report Type: 
  Country: None (occurrence: None)
  Receive Date: 20080909
  Receipt Date: 20080827
  Transmission Date: 20090109
  Serious: Yes (Hospitalization)
  Sender: FDA-Public Use
  Company Number: 2008-03173

PATIENT
  Age: 60 Year
  Sex: Female

DRUGS (2)
  1. VELCADE [Suspect]
     Indication: MULTIPLE MYELOMA
     Dosage: 1.3 MG/M2,
     Dates: end: 20080822
  2. DEXAMETHASONE [Concomitant]

REACTIONS (6)
  - COUGH [None]
  - DIARRHOEA [None]
  - HAEMOGLOBIN DECREASED [None]
  - RESPIRATORY DISORDER [None]
  - SEPTIC SHOCK [None]
  - THROMBOCYTOPENIA [None]
